FAERS Safety Report 24245883 (Version 2)
Quarter: 2024Q3

REPORT INFORMATION
  Report Type: Spontaneous
  Country: US (occurrence: None)
  Receive Date: 20240824
  Receipt Date: 20240915
  Transmission Date: 20241017
  Serious: No
  Sender: ASTRAZENECA
  Company Number: 2024A182641

PATIENT
  Sex: Female

DRUGS (2)
  1. BYDUREON [Suspect]
     Active Substance: EXENATIDE
     Dosage: UNKNOWN UNKNOWN
  2. BYDUREON BCISE [Concomitant]
     Active Substance: EXENATIDE

REACTIONS (2)
  - Wrong technique in device usage process [Unknown]
  - Device issue [Unknown]
